FAERS Safety Report 6480847-0 (Version None)
Quarter: 2009Q4

REPORT INFORMATION
  Report Type: 
  Country: None (occurrence: None)
  Receive Date: 20091208
  Receipt Date: 20091125
  Transmission Date: 20100525
  Serious: Yes (Hospitalization)
  Sender: FDA-Public Use
  Company Number: US-SANOFI-AVENTIS-2009SA006358

PATIENT
  Age: 65 Year
  Sex: Female

DRUGS (2)
  1. LANTUS [Suspect]
     Dosage: DOSE:35 UNIT(S)
     Route: 058
     Dates: start: 20060101
  2. OPTICLICK [Suspect]
     Dates: start: 20060101

REACTIONS (2)
  - HOSPITALISATION [None]
  - VISUAL ACUITY REDUCED [None]
